FAERS Safety Report 9377620 (Version 2)
Quarter: 2013Q3

REPORT INFORMATION
  Report Type: Spontaneous
  Country: US (occurrence: US)
  Receive Date: 20130701
  Receipt Date: 20130703
  Transmission Date: 20140515
  Serious: Yes (Hospitalization)
  Sender: FDA-Public Use
  Company Number: US-DYAX CORP.-2012DX000209

PATIENT
  Age: 34 Year
  Sex: Female
  Weight: 70.37 kg

DRUGS (9)
  1. KALBITOR [Suspect]
     Indication: HEREDITARY ANGIOEDEMA
     Route: 058
     Dates: start: 20120830, end: 20120830
  2. KALBITOR [Suspect]
     Route: 058
     Dates: start: 20120823, end: 20120823
  3. KALBITOR [Suspect]
     Route: 058
     Dates: start: 201103
  4. METFORMIN [Concomitant]
     Indication: POLYCYSTIC OVARIES
     Route: 065
  5. BERINERT [Concomitant]
     Indication: HEREDITARY ANGIOEDEMA
     Route: 065
     Dates: start: 20130520, end: 20130520
  6. BERINERT [Concomitant]
     Route: 042
     Dates: start: 201211, end: 201211
  7. PRENATAL VIT-FOLIC ACID [Concomitant]
     Indication: PREGNANCY
     Route: 048
  8. ARMOUR THYROID [Concomitant]
     Indication: HYPOTHYROIDISM
     Route: 048
  9. FLU VACCINE [Concomitant]
     Indication: INFLUENZA IMMUNISATION
     Route: 065
     Dates: start: 20121026, end: 20121026

REACTIONS (8)
  - Cholecystitis acute [Recovered/Resolved]
  - Cholelithiasis [Recovered/Resolved]
  - Lactation puerperal increased [Unknown]
  - Breast mass [Unknown]
  - Biliary colic [Unknown]
  - Anxiety [Unknown]
  - Weight decreased [Unknown]
  - Pregnancy [Recovered/Resolved]
